FAERS Safety Report 11769794 (Version 2)
Quarter: 2015Q4

REPORT INFORMATION
  Report Type: Spontaneous
  Country: US (occurrence: US)
  Receive Date: 20151123
  Receipt Date: 20151124
  Transmission Date: 20160304
  Serious: Yes (Hospitalization, Other)
  Sender: FDA-Public Use
  Company Number: US-SA-2015SA183729

PATIENT
  Age: 73 Year
  Sex: Female

DRUGS (2)
  1. SOLOSTAR [Concomitant]
     Active Substance: DEVICE
  2. LANTUS SOLOSTAR [Suspect]
     Active Substance: INSULIN GLARGINE
     Indication: TYPE 2 DIABETES MELLITUS
     Dosage: DOSE:28 UNIT(S)
     Route: 065

REACTIONS (15)
  - Chronic kidney disease [Unknown]
  - Spinal disorder [Unknown]
  - Insomnia [Unknown]
  - Viral infection [Unknown]
  - Carpal tunnel syndrome [Unknown]
  - Intracranial aneurysm [Unknown]
  - Arthritis [Unknown]
  - Condition aggravated [Unknown]
  - Cough [Unknown]
  - Speech disorder [Unknown]
  - Anxiety [Unknown]
  - Syncope [Unknown]
  - Memory impairment [Unknown]
  - Hip surgery [Unknown]
  - Dupuytren^s contracture [Unknown]

NARRATIVE: CASE EVENT DATE: 2005
